FAERS Safety Report 15774638 (Version 1)
Quarter: 2018Q4

REPORT INFORMATION
  Report Type: Spontaneous
  Country: FR (occurrence: FR)
  Receive Date: 20181230
  Receipt Date: 20181230
  Transmission Date: 20190205
  Serious: Yes (Hospitalization)
  Sender: FDA-Public Use
  Company Number: FR-TEVA-2018-FR-992684

PATIENT
  Age: 60 Year
  Sex: Female
  Weight: 86 kg

DRUGS (2)
  1. AMLODIPINE [Suspect]
     Active Substance: AMLODIPINE BESYLATE
     Indication: POISONING DELIBERATE
     Route: 048
     Dates: start: 20180716
  2. FLECAINE L.P. 100 MG, G?LULE ? LIB?RATION PROLONG?E [Suspect]
     Active Substance: FLECAINIDE
     Indication: POISONING DELIBERATE
     Route: 048
     Dates: start: 20180716

REACTIONS (2)
  - Altered state of consciousness [Recovered/Resolved]
  - Bifascicular block [Recovered/Resolved]

NARRATIVE: CASE EVENT DATE: 20180716
